FAERS Safety Report 6326230-X (Version None)
Quarter: 2009Q3

REPORT INFORMATION
  Report Type: 
  Country: None (occurrence: None)
  Receive Date: 20090820
  Receipt Date: 20090728
  Transmission Date: 20100115
  Serious: Yes (Other)
  Sender: FDA-Public Use
  Company Number: 2009-201152-NL

PATIENT
  Age: 70 Year
  Sex: Female
  Weight: 61.2356 kg

DRUGS (6)
  1. REMERON [Suspect]
     Indication: DEPRESSION
     Dates: start: 20040624, end: 20040701
  2. ZESTRIL [Concomitant]
  3. ZANTAC [Concomitant]
  4. CARDIZEM [Concomitant]
  5. TARKA [Concomitant]
  6. LEXAPRO [Concomitant]

REACTIONS (2)
  - CONVULSION [None]
  - DRUG TOLERANCE DECREASED [None]
